FAERS Safety Report 9397805 (Version 1)
Quarter: 2013Q3

REPORT INFORMATION
  Report Type: Spontaneous
  Country: US (occurrence: None)
  Receive Date: 20130711
  Receipt Date: 20130711
  Transmission Date: 20140515
  Serious: Yes (Hospitalization)
  Sender: FDA-Public Use
  Company Number: None

PATIENT
  Age: 73 Year
  Sex: Female
  Weight: 61.7 kg

DRUGS (3)
  1. BENDAMUSTINE [Suspect]
  2. BORTEZOMIB [Suspect]
  3. RITUXIMAB [Suspect]

REACTIONS (3)
  - Pyrexia [None]
  - Rash [None]
  - Cough [None]
